FAERS Safety Report 14766526 (Version 1)
Quarter: 2018Q2

REPORT INFORMATION
  Report Type: Report from Study
  Country: None (occurrence: LB)
  Receive Date: 20180416
  Receipt Date: 20180416
  Transmission Date: 20180711
  Serious: Yes (Hospitalization)
  Sender: FDA-Public Use
  Company Number: LB-ABBVIE-18K-093-2322390-00

PATIENT
  Age: 49 Year
  Sex: Female
  Weight: 70 kg

DRUGS (8)
  1. NEXIUM [Concomitant]
     Active Substance: ESOMEPRAZOLE MAGNESIUM
     Indication: PRODUCT USED FOR UNKNOWN INDICATION
  2. DIANE (CYPROTERONE ACETATE\ETHINYL ESTRADIOL) [Concomitant]
     Active Substance: CYPROTERONE ACETATE\ETHINYL ESTRADIOL
     Indication: PRODUCT USED FOR UNKNOWN INDICATION
  3. AMARYL [Concomitant]
     Active Substance: GLIMEPIRIDE
     Indication: PRODUCT USED FOR UNKNOWN INDICATION
  4. CIPRALEX [Concomitant]
     Active Substance: ESCITALOPRAM OXALATE
     Indication: PRODUCT USED FOR UNKNOWN INDICATION
  5. HUMIRA [Suspect]
     Active Substance: ADALIMUMAB
     Indication: RHEUMATOID ARTHRITIS
     Route: 058
     Dates: start: 20160930
  6. EUROFOLIC [Concomitant]
     Indication: PRODUCT USED FOR UNKNOWN INDICATION
  7. EURO D [Concomitant]
     Indication: PRODUCT USED FOR UNKNOWN INDICATION
  8. EBETREXAT [Concomitant]
     Active Substance: METHOTREXATE SODIUM
     Indication: PRODUCT USED FOR UNKNOWN INDICATION

REACTIONS (3)
  - Menstruation delayed [Recovered/Resolved]
  - Benign neoplasm of cervix uteri [Recovered/Resolved]
  - Abdominal pain [Recovered/Resolved]

NARRATIVE: CASE EVENT DATE: 201610
